FAERS Safety Report 16688792 (Version 1)
Quarter: 2019Q3

REPORT INFORMATION
  Report Type: Spontaneous
  Country: JP (occurrence: JP)
  Receive Date: 20190809
  Receipt Date: 20190809
  Transmission Date: 20191004
  Serious: Yes (Death, Hospitalization, Other)
  Sender: FDA-Public Use
  Company Number: JP-PFIZER INC-2019338188

PATIENT
  Age: 81 Year
  Sex: Male
  Weight: 39 kg

DRUGS (22)
  1. TAZOPIPE [Suspect]
     Active Substance: PIPERACILLIN SODIUM\TAZOBACTAM SODIUM
     Indication: PNEUMONIA
     Dosage: HALF DOSE
     Route: 041
     Dates: start: 20181212
  2. MAGMITT [Concomitant]
     Active Substance: MAGNESIUM OXIDE
     Dosage: UNK
  3. PREDNISOLONE. [Concomitant]
     Active Substance: PREDNISOLONE
     Dosage: UNK
  4. ASCORBIC ACID. [Concomitant]
     Active Substance: ASCORBIC ACID
     Dosage: UNK
  5. EDIROL [Concomitant]
     Active Substance: ELDECALCITOL
     Dosage: UNK
  6. METHOTREXATE. [Suspect]
     Active Substance: METHOTREXATE
     Indication: RHEUMATOID ARTHRITIS
     Dosage: UNK
     Route: 048
  7. TAKECAB [Concomitant]
     Active Substance: VONOPRAZAN FUMURATE
     Dosage: UNK
  8. BIO-THREE [Concomitant]
     Active Substance: HERBALS
     Dosage: UNK
  9. FESIN [SACCHARATED IRON OXIDE] [Concomitant]
     Dosage: UNK
  10. MEROPENEM PFIZER [Suspect]
     Active Substance: MEROPENEM
     Indication: APPENDICITIS
     Dosage: 0.25 G, 2X/DAY
     Route: 041
     Dates: start: 20181205, end: 20181206
  11. MEROPENEM PFIZER [Suspect]
     Active Substance: MEROPENEM
     Dosage: UNK
     Dates: start: 20181226
  12. VITAMEDIN INTRAVENOUS [Concomitant]
     Active Substance: CYANOCOBALAMIN\PYRIDOXINE HYDROCHLORIDE\THIAMINE
     Dosage: UNK
  13. TAZOPIPE [Suspect]
     Active Substance: PIPERACILLIN SODIUM\TAZOBACTAM SODIUM
     Dosage: 4.5 G, 3X/DAY
     Route: 041
     Dates: start: 20181224, end: 20181224
  14. MOBIC [Concomitant]
     Active Substance: MELOXICAM
     Dosage: UNK
  15. TEMOCAPRIL HYDROCHLORIDE [Concomitant]
     Active Substance: TEMOCAPRIL HYDROCHLORIDE
     Dosage: UNK
  16. RISEDRONATE [Concomitant]
     Active Substance: RISEDRONATE SODIUM
     Dosage: UNK
  17. FOLIAMIN [Concomitant]
     Active Substance: FOLIC ACID
     Dosage: UNK
  18. GLUCOSE [Concomitant]
     Active Substance: DEXTROSE
     Dosage: UNK
  19. BFLUID [Concomitant]
     Active Substance: AMINO ACIDS\DEXTROSE\ELECTROLYTES NOS\VITAMINS
     Dosage: UNK
  20. RHEUMATREX [Concomitant]
     Active Substance: METHOTREXATE SODIUM
     Dosage: UNK
  21. URIEF [Concomitant]
     Active Substance: SILODOSIN
     Dosage: UNK
  22. CILOSTAZOL. [Concomitant]
     Active Substance: CILOSTAZOL
     Dosage: UNK

REACTIONS (9)
  - Pneumonia [Fatal]
  - Procalcitonin increased [Unknown]
  - Skin disorder [Fatal]
  - White blood cell count decreased [Unknown]
  - Bone marrow failure [Fatal]
  - Cardio-respiratory arrest [Fatal]
  - C-reactive protein increased [Unknown]
  - Granulocytopenia [Unknown]
  - Rash [Not Recovered/Not Resolved]

NARRATIVE: CASE EVENT DATE: 20181224
